FAERS Safety Report 5967457-6 (Version None)
Quarter: 2008Q4

REPORT INFORMATION
  Report Type: 
  Country: None (occurrence: None)
  Receive Date: 20081125
  Receipt Date: 20081114
  Transmission Date: 20090506
  Serious: Yes (Other)
  Sender: FDA-Public Use
  Company Number: GB-PFIZER INC-2008096743

PATIENT
  Age: 7 Year

DRUGS (4)
  1. CYCLOPHOSPHAMIDE [Suspect]
     Indication: JUVENILE CHRONIC MYELOMONOCYTIC LEUKAEMIA
     Route: 042
  2. CYCLOSPORINE [Suspect]
     Indication: JUVENILE CHRONIC MYELOMONOCYTIC LEUKAEMIA
  3. TREOSULFAN [Suspect]
     Indication: JUVENILE CHRONIC MYELOMONOCYTIC LEUKAEMIA
     Dosage: TEXT:12 G/M2-FREQ:ON DAYS -6, -5 AND -4
     Route: 042
  4. ATGAM [Concomitant]

REACTIONS (3)
  - CYTOMEGALOVIRUS INFECTION [None]
  - DISEASE PROGRESSION [None]
  - EPSTEIN-BARR VIRUS INFECTION [None]
